FAERS Safety Report 5091343-X (Version None)
Quarter: 2006Q3

REPORT INFORMATION
  Report Type: 
  Country: None (occurrence: None)
  Receive Date: 20060824
  Receipt Date: 20060814
  Transmission Date: 20061208
  Serious: Yes (Other)
  Sender: FDA-Public Use
  Company Number: 2006079252

PATIENT
  Age: 51 Year
  Sex: Female

DRUGS (4)
  1. LYRICA [Suspect]
     Indication: NEURALGIA
     Dosage: 150 MG (75 MG, 2 IN 1 D), ORAL
     Route: 048
     Dates: start: 20060302, end: 20060512
  2. CLONAZEPAM [Concomitant]
  3. MS CONTIN [Concomitant]
  4. ORDINE (MORPHINE HYDROCHLORIDE) [Concomitant]

REACTIONS (4)
  - OEDEMA MOUTH [None]
  - OEDEMA PERIPHERAL [None]
  - SOMNOLENCE [None]
  - SWELLING [None]
